FAERS Safety Report 4451134-7 (Version None)
Quarter: 2004Q3

REPORT INFORMATION
  Report Type: 
  Country: None (occurrence: None)
  Receive Date: 20040913
  Receipt Date: 20040723
  Transmission Date: 20050211
  Serious: No
  Sender: FDA-Public Use
  Company Number: 2004-BP-06061BP

PATIENT
  Age: 77 Year
  Sex: Female

DRUGS (6)
  1. SPIRIVA [Suspect]
     Indication: CHRONIC OBSTRUCTIVE AIRWAYS DISEASE
     Dosage: 18 MCG (18 MCG, 1 OD), IH
     Route: 055
     Dates: start: 20040601
  2. SYNTHROID [Concomitant]
  3. LIPITOR [Concomitant]
  4. QUAIFAN [Concomitant]
  5. SEREVENT [Concomitant]
  6. OXYGEN [Concomitant]

REACTIONS (3)
  - DYSGEUSIA [None]
  - DYSPNOEA [None]
  - THROAT IRRITATION [None]
